FAERS Safety Report 23457645 (Version 1)
Quarter: 2024Q1

REPORT INFORMATION
  Report Type: Spontaneous
  Country: US (occurrence: US)
  Receive Date: 20240130
  Receipt Date: 20240130
  Transmission Date: 20240410
  Serious: No
  Sender: FDA-Public Use
  Company Number: US-GALDERMA-US2023011556

PATIENT

DRUGS (2)
  1. IVERMECTIN [Suspect]
     Active Substance: IVERMECTIN
     Indication: Product used for unknown indication
     Dosage: 1 DOSAGE FORM, QOD, APPLIED ON FACE
     Route: 061
     Dates: start: 20230717, end: 20230724
  2. IVERMECTIN [Suspect]
     Active Substance: IVERMECTIN
     Dosage: 1 DOSAGE FORM, QD, APPLIED ON FACE
     Route: 061
     Dates: start: 202307, end: 20230731

REACTIONS (4)
  - Application site irritation [Not Recovered/Not Resolved]
  - Intentional product misuse [Recovered/Resolved]
  - Intentional underdose [Recovered/Resolved]
  - Product temperature excursion issue [Recovered/Resolved]

NARRATIVE: CASE EVENT DATE: 20230717
